FAERS Safety Report 15074894 (Version 1)
Quarter: 2018Q2

REPORT INFORMATION
  Report Type: Spontaneous
  Country: US (occurrence: US)
  Receive Date: 20180627
  Receipt Date: 20180627
  Transmission Date: 20180711
  Serious: Yes (Other)
  Sender: FDA-Public Use
  Company Number: US-SAOL THERAPEUTICS-2017SAO01515

PATIENT
  Age: 39 Year
  Sex: Male
  Weight: 79.37 kg

DRUGS (2)
  1. COMPOUNDED BACLOFEN [Suspect]
     Active Substance: BACLOFEN
     Indication: MUSCLE SPASTICITY
     Dosage: 970 ?G, \DAY
     Route: 037
     Dates: start: 1997
  2. COMPOUNDED BACLOFEN [Suspect]
     Active Substance: BACLOFEN
     Indication: BRAIN HYPOXIA
     Dosage: 950.5 ?G, \DAY
     Route: 037

REACTIONS (4)
  - Device failure [Recovered/Resolved]
  - Body temperature increased [Recovered/Resolved]
  - Pruritus [Recovered/Resolved]
  - Tremor [Recovered/Resolved]

NARRATIVE: CASE EVENT DATE: 20170921
